FAERS Safety Report 6129650-1 (Version None)
Quarter: 2009Q1

REPORT INFORMATION
  Report Type: 
  Country: None (occurrence: None)
  Receive Date: 20090320
  Receipt Date: 20090306
  Transmission Date: 20090719
  Serious: Yes (Other)
  Sender: FDA-Public Use
  Company Number: 200903AGG00852

PATIENT
  Age: 49 Year
  Sex: Male

DRUGS (2)
  1. TIROFIBAN HYDROCHLORIDE (TIROFIBAN HCL) [Suspect]
     Indication: PREMEDICATION
     Dosage: ((DOSE AND DURATION NOT REPORTED) INTRAVENOUS (NOT OTHERWISE SPECIFIED)
  2. HEPARIN [Concomitant]

REACTIONS (7)
  - CAROTID ARTERY STENOSIS [None]
  - DISEASE COMPLICATION [None]
  - DISEASE PROGRESSION [None]
  - EMBOLISM [None]
  - INCORRECT DOSE ADMINISTERED [None]
  - INFECTION [None]
  - STENT OCCLUSION [None]
